FAERS Safety Report 12390196 (Version 2)
Quarter: 2016Q3

REPORT INFORMATION
  Report Type: Other
  Country: FR (occurrence: FR)
  Receive Date: 20160520
  Receipt Date: 20160821
  Transmission Date: 20161109
  Serious: Yes (Hospitalization)
  Sender: FDA-Public Use
  Company Number: 2015-002904 WARNER CHILCOTT

PATIENT
  Age: 58 Year
  Sex: Male

DRUGS (16)
  1. PROGRAF [Concomitant]
     Active Substance: TACROLIMUS\TACROLIMUS ANHYDROUS
     Dates: start: 20151031
  2. AVLOCARDYL [Concomitant]
     Active Substance: PROPRANOLOL HYDROCHLORIDE
  3. ROVALCYTE [Suspect]
     Active Substance: VALGANCICLOVIR HYDROCHLORIDE
     Dates: start: 201509
  4. AVLOCARDYL [Concomitant]
     Active Substance: PROPRANOLOL HYDROCHLORIDE
  5. KARDEGIC [Concomitant]
     Active Substance: ASPIRIN LYSINE
  6. KARDEGIC [Concomitant]
     Active Substance: ASPIRIN LYSINE
     Dates: start: 20151031
  7. CORTANCYL [Concomitant]
     Active Substance: PREDNISONE
  8. CELLCEPT [Suspect]
     Active Substance: MYCOPHENOLATE MOFETIL\MYCOPHENOLATE MOFETIL HYDROCHLORIDE
     Route: 048
     Dates: start: 201501, end: 20151022
  9. EUPANTOL [Suspect]
     Active Substance: PANTOPRAZOLE SODIUM
     Route: 048
     Dates: end: 20151022
  10. ACTONEL [Suspect]
     Active Substance: RISEDRONATE SODIUM
     Route: 048
     Dates: end: 20151022
  11. OFLOCET [Suspect]
     Active Substance: OFLOXACIN
     Route: 048
     Dates: start: 20150930, end: 20151022
  12. DELURSAN [Concomitant]
     Active Substance: URSODIOL
  13. CERIS [Concomitant]
     Active Substance: TROSPIUM CHLORIDE
  14. VITAMIN K1 [Concomitant]
     Active Substance: PHYTONADIONE
     Dates: start: 201507
  15. LOVENOX [Concomitant]
     Active Substance: ENOXAPARIN SODIUM
  16. PROGRAF [Concomitant]
     Active Substance: TACROLIMUS\TACROLIMUS ANHYDROUS
     Dates: start: 201501

REACTIONS (4)
  - Thrombocytopenia [Recovering/Resolving]
  - Anaemia [Recovering/Resolving]
  - Agranulocytosis [Recovering/Resolving]
  - Neutropenia [Recovering/Resolving]

NARRATIVE: CASE EVENT DATE: 20150928
